FAERS Safety Report 4585650-4 (Version None)
Quarter: 2005Q1

REPORT INFORMATION
  Report Type: 
  Country: None (occurrence: None)
  Receive Date: 20050214
  Receipt Date: 20050201
  Transmission Date: 20050727
  Serious: Yes (Hospitalization)
  Sender: FDA-Public Use
  Company Number: 2005025741

PATIENT
  Age: 45 Year
  Sex: Female

DRUGS (1)
  1. VALDECOXIB [Suspect]
     Indication: CARPAL TUNNEL SYNDROME

REACTIONS (12)
  - BLOOD CREATININE INCREASED [None]
  - DIZZINESS [None]
  - HYPOALBUMINAEMIA [None]
  - HYPOCALCAEMIA [None]
  - HYPOPHOSPHATAEMIA [None]
  - HYPOTENSION [None]
  - LABORATORY TEST INTERFERENCE [None]
  - LEUKOCYTOSIS [None]
  - NAUSEA [None]
  - STAPHYLOCOCCAL INFECTION [None]
  - TACHYCARDIA [None]
  - TOXIC EPIDERMAL NECROLYSIS [None]
